FAERS Safety Report 7522560-4 (Version None)
Quarter: 2011Q2

REPORT INFORMATION
  Report Type: 
  Country: None (occurrence: None)
  Receive Date: 20110603
  Receipt Date: 20110502
  Transmission Date: 20111010
  Serious: No
  Sender: FDA-Public Use
  Company Number: US-BAYER-2011-038457

PATIENT

DRUGS (2)
  1. ALEVE (CAPLET) [Suspect]
     Dosage: COUNT BOTTLE NOT REPORTED
     Route: 048
  2. VICODIN [Concomitant]
     Indication: PRODUCT USED FOR UNKNOWN INDICATION
     Dosage: 1 DF, ONCE
     Route: 048

REACTIONS (1)
  - NO ADVERSE EVENT [None]
